FAERS Safety Report 8021756-5 (Version None)
Quarter: 2012Q1

REPORT INFORMATION
  Report Type: 
  Country: None (occurrence: None)
  Receive Date: 20120104
  Receipt Date: 20120102
  Transmission Date: 20120608
  Serious: Yes (Hospitalization)
  Sender: FDA-Public Use
  Company Number: PHHY2012FR000475

PATIENT
  Sex: Female

DRUGS (8)
  1. ONCOVIN [Suspect]
     Indication: ACUTE LYMPHOCYTIC LEUKAEMIA RECURRENT
     Dates: end: 20110801
  2. KEPPRA [Concomitant]
     Indication: EPILEPSY
  3. CYCLOPHOSPHAMIDE [Suspect]
  4. TASIGNA [Suspect]
     Indication: ACUTE LYMPHOCYTIC LEUKAEMIA RECURRENT
     Dosage: 2 DF, BID
     Dates: start: 20110601
  5. VINCRISTINE [Suspect]
  6. PREDNISONE TAB [Suspect]
  7. NEODEX [Suspect]
     Indication: ACUTE LYMPHOCYTIC LEUKAEMIA RECURRENT
     Dates: start: 20110722
  8. ZOLPIDEM [Concomitant]

REACTIONS (3)
  - ABDOMINAL PAIN [None]
  - SUBILEUS [None]
  - ARTHRALGIA [None]
